FAERS Safety Report 6925887-X (Version None)
Quarter: 2010Q3

REPORT INFORMATION
  Report Type: 
  Country: None (occurrence: None)
  Receive Date: 20100810
  Receipt Date: 20100727
  Transmission Date: 20110219
  Serious: Yes (Life-Threatening, Hospitalization)
  Sender: FDA-Public Use
  Company Number: LEO-2010-00590

PATIENT
  Age: 63 Year
  Sex: Female
  Weight: 79 kg

DRUGS (2)
  1. INNOHEP [Suspect]
     Indication: DIALYSIS
     Dosage: (SINCE 2008), HEMODIALYSIS
     Route: 010
  2. INNOHEP [Suspect]

REACTIONS (9)
  - ACUTE LUNG INJURY [None]
  - ACUTE PULMONARY OEDEMA [None]
  - CARDIOMEGALY [None]
  - FOREIGN TRAVEL [None]
  - HAEMODIALYSIS-INDUCED SYMPTOM [None]
  - KIDNEY TRANSPLANT REJECTION [None]
  - MALARIA PROPHYLAXIS [None]
  - NEPHRECTOMY [None]
  - VISUAL IMPAIRMENT [None]
